FAERS Safety Report 9711068 (Version 2)
Quarter: 2014Q2

REPORT INFORMATION
  Report Type: Spontaneous
  Country: US (occurrence: US)
  Receive Date: 20131126
  Receipt Date: 20140510
  Transmission Date: 20141212
  Serious: No
  Sender: FDA-Public Use
  Company Number: US-BRISTOL-MYERS SQUIBB COMPANY-19047075

PATIENT
  Age: 59 Year
  Sex: Female
  Weight: 71.2 kg

DRUGS (5)
  1. BYDUREON [Suspect]
     Indication: TYPE 2 DIABETES MELLITUS
     Dosage: INTER ON AN UNKNOWN DATE AND RESTARTED ON 7OCT13
     Route: 058
     Dates: start: 2013, end: 2013
  2. LISINOPRIL [Concomitant]
  3. FORTAMET [Concomitant]
     Dosage: 1DF:1000 UNIT NOS
  4. ASPIRIN [Concomitant]
  5. VITAMIN D [Concomitant]

REACTIONS (3)
  - Injection site nodule [Not Recovered/Not Resolved]
  - Weight decreased [Unknown]
  - Muscle spasms [Recovered/Resolved]
